FAERS Safety Report 12176622 (Version 1)
Quarter: 2016Q1

REPORT INFORMATION
  Report Type: Spontaneous
  Country: US (occurrence: US)
  Receive Date: 20160314
  Receipt Date: 20160314
  Transmission Date: 20160526
  Serious: No
  Sender: FDA-Public Use
  Company Number: US-AKORN PHARMACEUTICALS-2015AKN00442

PATIENT
  Age: 36 Year
  Sex: Female
  Weight: 86.17 kg

DRUGS (1)
  1. MYORISAN [Suspect]
     Active Substance: ISOTRETINOIN
     Indication: HIDRADENITIS
     Dosage: UNK
     Dates: start: 20150313, end: 20150727

REACTIONS (2)
  - Drug ineffective for unapproved indication [Unknown]
  - Mucosal dryness [Unknown]

NARRATIVE: CASE EVENT DATE: 20150313
